FAERS Safety Report 5256268-5 (Version None)
Quarter: 2007Q1

REPORT INFORMATION
  Report Type: 
  Country: None (occurrence: None)
  Receive Date: 20070302
  Receipt Date: 20070302
  Transmission Date: 20070707
  Serious: Yes (Other)
  Sender: FDA-Public Use
  Company Number: None

PATIENT
  Sex: Female
  Weight: 27.2158 kg

DRUGS (2)
  1. TAMIFLU [Suspect]
     Indication: INFLUENZA
     Dosage: 5 ML BID PO
     Route: 048
     Dates: start: 20070227, end: 20070301
  2. CHILDREN'S MOTRIN [Concomitant]

REACTIONS (2)
  - ABNORMAL DREAMS [None]
  - HALLUCINATION [None]
